FAERS Safety Report 9918154 (Version 1)
Quarter: 2014Q1

REPORT INFORMATION
  Report Type: Spontaneous
  Country: US (occurrence: US)
  Receive Date: 20140223
  Receipt Date: 20140223
  Transmission Date: 20141002
  Serious: No
  Sender: FDA-Public Use
  Company Number: US-ALLERGAN-1307735US

PATIENT
  Age: 26 Year
  Sex: Female
  Weight: 84 kg

DRUGS (5)
  1. OZURDEX [Suspect]
     Indication: UVEITIS
     Dosage: 0.7 MG, SINGLE
     Route: 031
     Dates: start: 20130307, end: 20130307
  2. DIOVAN                             /01319601/ [Concomitant]
     Indication: HYPERTENSION
     Dosage: 80 MG, QD
     Route: 048
  3. PREDNISOLONE EYE DROPS [Concomitant]
     Indication: VISION BLURRED
     Dosage: 2 GTT, PRN
     Route: 047
  4. DUREZOL EYE DROPS [Concomitant]
     Indication: PRODUCT USED FOR UNKNOWN INDICATION
     Dosage: 2 GTT, PRN
     Route: 047
  5. VIGAMOX [Concomitant]
     Indication: PRODUCT USED FOR UNKNOWN INDICATION
     Dosage: UNK
     Dates: start: 20130307

REACTIONS (2)
  - Administration site pain [Recovered/Resolved]
  - Aqueous humour leakage [Recovered/Resolved]
